FAERS Safety Report 22822815 (Version 3)
Quarter: 2023Q4

REPORT INFORMATION
  Report Type: Report from Study
  Country: US (occurrence: US)
  Receive Date: 20230815
  Receipt Date: 20231221
  Transmission Date: 20240110
  Serious: Yes (Hospitalization, Other)
  Sender: FDA-Public Use
  Company Number: US-ABBVIE-5364807

PATIENT
  Sex: Female
  Weight: 77.11 kg

DRUGS (2)
  1. RINVOQ [Suspect]
     Active Substance: UPADACITINIB
     Indication: Rheumatoid arthritis
     Dosage: STOP DATE: 2023
     Route: 048
     Dates: start: 20230315
  2. RINVOQ [Suspect]
     Active Substance: UPADACITINIB
     Indication: Rheumatoid arthritis
     Route: 048
     Dates: start: 20230515

REACTIONS (14)
  - Arthropod bite [Recovered/Resolved]
  - Dehydration [Unknown]
  - Pruritus [Not Recovered/Not Resolved]
  - Loss of consciousness [Recovered/Resolved]
  - Vascular device infection [Recovered/Resolved]
  - COVID-19 [Unknown]
  - Peripheral swelling [Unknown]
  - Skin wound [Unknown]
  - Back pain [Unknown]
  - Pain in extremity [Unknown]
  - Pain in extremity [Unknown]
  - Muscular weakness [Unknown]
  - Skin haemorrhage [Unknown]
  - Infection [Unknown]

NARRATIVE: CASE EVENT DATE: 20230101
